FAERS Safety Report 10056052 (Version 3)
Quarter: 2014Q2

REPORT INFORMATION
  Report Type: Spontaneous
  Country: JP (occurrence: JP)
  Receive Date: 20140403
  Receipt Date: 20140421
  Transmission Date: 20141212
  Serious: Yes (Other)
  Sender: FDA-Public Use
  Company Number: JP-JNJFOC-20140318965

PATIENT
  Age: 82 Year
  Sex: Female

DRUGS (5)
  1. TRAMCET [Suspect]
     Indication: PAIN
     Dosage: 3 DOSES 3 PER DAY
     Route: 048
     Dates: start: 20120917, end: 20140310
  2. LYRICA [Concomitant]
     Route: 048
  3. EDIROL [Concomitant]
     Route: 048
  4. MAGMITT [Concomitant]
     Route: 048
  5. SENNARIDE [Concomitant]
     Route: 048

REACTIONS (2)
  - Gastric ulcer [Recovering/Resolving]
  - Anaemia [Recovering/Resolving]
